FAERS Safety Report 15292307 (Version 1)
Quarter: 2018Q3

REPORT INFORMATION
  Report Type: Spontaneous
  Country: FR (occurrence: FR)
  Receive Date: 20180818
  Receipt Date: 20180818
  Transmission Date: 20181010
  Serious: Yes (Hospitalization)
  Sender: FDA-Public Use
  Company Number: FR-AUROBINDO-AUR-APL-2018-041838

PATIENT
  Age: 32 Year
  Sex: Male
  Weight: 51.5 kg

DRUGS (3)
  1. RISPERIDONE. [Suspect]
     Active Substance: RISPERIDONE
     Indication: PRODUCT USED FOR UNKNOWN INDICATION
     Dosage: UNK
     Route: 048
     Dates: end: 20180207
  2. MIRTAZAPINE. [Suspect]
     Active Substance: MIRTAZAPINE
     Indication: ANOREXIA NERVOSA
     Dosage: 30 MILLIGRAM, ONCE A DAY
     Route: 048
     Dates: end: 20180207
  3. ALDACTONE [Suspect]
     Active Substance: SPIRONOLACTONE
     Indication: DECREASED APPETITE
     Dosage: UNK
     Route: 048
     Dates: end: 201802

REACTIONS (1)
  - Acute generalised exanthematous pustulosis [Recovered/Resolved]

NARRATIVE: CASE EVENT DATE: 20180207
